FAERS Safety Report 9882298 (Version 1)
Quarter: 2014Q1

REPORT INFORMATION
  Report Type: Spontaneous
  Country: CA (occurrence: CA)
  Receive Date: 20140207
  Receipt Date: 20140207
  Transmission Date: 20141002
  Serious: Yes (Other)
  Sender: FDA-Public Use
  Company Number: CA-BAYER-2014-016417

PATIENT
  Sex: Male
  Weight: 81.63 kg

DRUGS (1)
  1. GADOVIST [Suspect]
     Dosage: 8 ML, UNK
     Route: 042

REACTIONS (5)
  - Convulsion [Recovered/Resolved]
  - Presyncope [Recovered/Resolved]
  - Dizziness [Recovered/Resolved]
  - Loss of consciousness [Recovered/Resolved]
  - Incontinence [Recovered/Resolved]
